FAERS Safety Report 17461371 (Version 1)
Quarter: 2020Q1

REPORT INFORMATION
  Report Type: Spontaneous
  Country: FR (occurrence: FR)
  Receive Date: 20200226
  Receipt Date: 20200226
  Transmission Date: 20200409
  Serious: Yes (Other)
  Sender: FDA-Public Use
  Company Number: FR-SA-2020SA049297

PATIENT
  Age: 28 Year
  Sex: Female
  Weight: 60 kg

DRUGS (1)
  1. RIFADIN [Suspect]
     Active Substance: RIFAMPIN
     Indication: PROPHYLACTIC CHEMOTHERAPY
     Dosage: 2 DF, QD
     Route: 048
     Dates: start: 20200103, end: 20200113

REACTIONS (2)
  - Influenza like illness [Recovered/Resolved]
  - Hypersensitivity [Recovered/Resolved]

NARRATIVE: CASE EVENT DATE: 20200113
